FAERS Safety Report 17111622 (Version 1)
Quarter: 2019Q4

REPORT INFORMATION
  Report Type: Spontaneous
  Country: US (occurrence: US)
  Receive Date: 20191203
  Receipt Date: 20191203
  Transmission Date: 20200122
  Serious: Yes (Death)
  Sender: FDA-Public Use
  Company Number: None

PATIENT
  Age: 57 Year
  Sex: Female

DRUGS (9)
  1. POT CHLORIDE TAB [Concomitant]
  2. FUROSEMIDE. [Concomitant]
     Active Substance: FUROSEMIDE
  3. MAGNESIUM-OXIDE TAB [Concomitant]
  4. ATROVENT HFA [Concomitant]
     Active Substance: IPRATROPIUM BROMIDE
  5. ETOPOSIDE. [Suspect]
     Active Substance: ETOPOSIDE
     Indication: LUNG CARCINOMA CELL TYPE UNSPECIFIED STAGE 0
     Route: 048
     Dates: start: 20191126, end: 20191202
  6. METOPROLOL SUC [Concomitant]
  7. VENLAFAXINE [Concomitant]
     Active Substance: VENLAFAXINE HYDROCHLORIDE
  8. BENZONATATE. [Concomitant]
     Active Substance: BENZONATATE
  9. OMEPRAZOLE. [Concomitant]
     Active Substance: OMEPRAZOLE

REACTIONS (1)
  - Death [None]

NARRATIVE: CASE EVENT DATE: 20191202
